FAERS Safety Report 20872917 (Version 2)
Quarter: 2022Q3

REPORT INFORMATION
  Report Type: Spontaneous
  Country: US (occurrence: US)
  Receive Date: 20220525
  Receipt Date: 20220701
  Transmission Date: 20221026
  Serious: Yes (Hospitalization)
  Sender: FDA-Public Use
  Company Number: US-BRISTOL-MYERS SQUIBB COMPANY-2022-041572

PATIENT
  Age: 53 Year
  Sex: Female
  Weight: 68.17 kg

DRUGS (2)
  1. IDHIFA [Suspect]
     Active Substance: ENASIDENIB MESYLATE
     Indication: Colon cancer
     Route: 048
     Dates: start: 20220314
  2. IDHIFA [Suspect]
     Active Substance: ENASIDENIB MESYLATE
     Indication: Isocitrate dehydrogenase gene mutation
     Route: 048
     Dates: start: 20220315

REACTIONS (4)
  - Hospitalisation [Unknown]
  - Product dose omission issue [Unknown]
  - Infection [Unknown]
  - Intentional device use issue [Unknown]

NARRATIVE: CASE EVENT DATE: 20220512
